FAERS Safety Report 9413781 (Version 1)
Quarter: 2013Q3

REPORT INFORMATION
  Report Type: Spontaneous
  Country: FR (occurrence: None)
  Receive Date: 20130717
  Receipt Date: 20130717
  Transmission Date: 20140515
  Serious: Yes (Other)
  Sender: FDA-Public Use
  Company Number: 2013MPI00067

PATIENT
  Age: 26 Year
  Sex: Female

DRUGS (1)
  1. BRENTUXIMAB VEDOTIN (BRENTUXIMAB VEDOTIN) INJECTION [Suspect]
     Indication: HODGKIN^S DISEASE
     Route: 042
     Dates: start: 20121107, end: 20130307

REACTIONS (3)
  - Weight increased [None]
  - Hodgkin^s disease [None]
  - Malignant neoplasm progression [None]
